FAERS Safety Report 7652977-9 (Version None)
Quarter: 2011Q3

REPORT INFORMATION
  Report Type: 
  Country: None (occurrence: None)
  Receive Date: 20110803
  Receipt Date: 20110801
  Transmission Date: 20111222
  Serious: Yes (Other)
  Sender: FDA-Public Use
  Company Number: DE-PFIZER INC-2011175413

PATIENT

DRUGS (2)
  1. LYRICA [Suspect]
     Dosage: UNK
  2. MORPHINE [Suspect]
     Dosage: UNK

REACTIONS (1)
  - RESPIRATORY DEPRESSION [None]
